FAERS Safety Report 13440322 (Version 1)
Quarter: 2017Q2

REPORT INFORMATION
  Report Type: Spontaneous
  Country: US (occurrence: US)
  Receive Date: 20170413
  Receipt Date: 20170413
  Transmission Date: 20170830
  Serious: Yes (Other)
  Sender: FDA-Public Use
  Company Number: US-ZYDUS-014550

PATIENT
  Age: 49 Year
  Sex: Male

DRUGS (2)
  1. METHOTREXATE. [Suspect]
     Active Substance: METHOTREXATE
     Indication: ACUTE MYELOID LEUKAEMIA
     Route: 037
  2. CYTARABINE/CYTARABINE HYDROCHLORIDE/CYTARABINE OCFOSFATE [Concomitant]
     Indication: ACUTE MYELOID LEUKAEMIA
     Route: 065

REACTIONS (9)
  - Urinary retention [Unknown]
  - Quadriparesis [Unknown]
  - Central nervous system necrosis [Unknown]
  - CSF myelin basic protein increased [Unknown]
  - Hypoaesthesia [Unknown]
  - Protein total increased [Unknown]
  - Myelopathy [Unknown]
  - Areflexia [Unknown]
  - White matter lesion [Unknown]
